FAERS Safety Report 8588436-9 (Version None)
Quarter: 2012Q3

REPORT INFORMATION
  Report Type: 
  Country: None (occurrence: None)
  Receive Date: 20120813
  Receipt Date: 20120807
  Transmission Date: 20120928
  Serious: No
  Sender: FDA-Public Use
  Company Number: US-PFIZER INC-2012193103

PATIENT
  Age: 54 Year
  Sex: Male
  Weight: 89.796 kg

DRUGS (2)
  1. VIAGRA [Suspect]
     Dosage: 100 MG, UNK
     Dates: start: 20110801
  2. LUPRON [Concomitant]
     Indication: PROSTATE CANCER
     Dosage: UNK

REACTIONS (1)
  - DRUG INEFFECTIVE [None]
